FAERS Safety Report 17163911 (Version 1)
Quarter: 2019Q4

REPORT INFORMATION
  Report Type: Spontaneous
  Country: PL (occurrence: PL)
  Receive Date: 20191217
  Receipt Date: 20191217
  Transmission Date: 20200122
  Serious: Yes (Hospitalization)
  Sender: FDA-Public Use
  Company Number: NVSC2019PL068610

PATIENT
  Sex: Female

DRUGS (19)
  1. FEXOFENADINE [Concomitant]
     Active Substance: FEXOFENADINE HYDROCHLORIDE
     Indication: DERMATITIS ATOPIC
     Dosage: 180 MG 2 DOSAGE FORMS DAILY; 1 DOSAGE FORM = 1 TABLET
     Route: 065
  2. NATAMYCIN [Concomitant]
     Active Substance: NATAMYCIN
     Indication: DERMATITIS ATOPIC
     Route: 061
  3. ZINC. [Concomitant]
     Active Substance: ZINC
     Indication: DERMATITIS ATOPIC
     Dosage: UNK
     Route: 061
  4. METFORMIN [Concomitant]
     Active Substance: METFORMIN HYDROCHLORIDE
     Indication: PRODUCT USED FOR UNKNOWN INDICATION
     Dosage: UNK
     Route: 065
  5. ERYTHROMYCIN. [Concomitant]
     Active Substance: ERYTHROMYCIN
     Indication: DERMATITIS ATOPIC
     Route: 061
  6. AZATHIOPRINE. [Suspect]
     Active Substance: AZATHIOPRINE
     Indication: DERMATITIS ATOPIC
     Route: 065
  7. CLEMASTINE [Concomitant]
     Active Substance: CLEMASTINE
     Indication: DERMATITIS ATOPIC
     Dosage: UNK
     Route: 065
  8. NEOMYCIN. [Concomitant]
     Active Substance: NEOMYCIN
     Indication: DERMATITIS ATOPIC
     Route: 061
  9. HYDROCORTISONE BUTYRATE. [Suspect]
     Active Substance: HYDROCORTISONE BUTYRATE
     Indication: DERMATITIS ATOPIC
     Route: 061
  10. DEXAMETHASONE. [Suspect]
     Active Substance: DEXAMETHASONE
     Indication: DERMATITIS ATOPIC
     Dosage: AT LIMITING DOSES
     Route: 061
  11. CEFOTAXIME [Concomitant]
     Active Substance: CEFOTAXIME SODIUM
     Indication: DERMATITIS ATOPIC
     Route: 065
  12. BILASTINE [Concomitant]
     Active Substance: BILASTINE
     Indication: DERMATITIS ATOPIC
     Dosage: 2 DF
     Route: 065
  13. HYDROXYZINE [Concomitant]
     Active Substance: HYDROXYZINE HYDROCHLORIDE
     Indication: DERMATITIS ATOPIC
     Dosage: AS NEEDED
     Route: 065
  14. CYCLOSPORINE. [Suspect]
     Active Substance: CYCLOSPORINE
     Indication: DERMATITIS ATOPIC
     Dosage: 200 MG, QD  DOSE WAS INCREASED THEREAFTER
     Route: 065
  15. CYCLOSPORINE. [Suspect]
     Active Substance: CYCLOSPORINE
     Dosage: 300 MG QD IN THE EVENING
     Route: 065
  16. RANITIDINE. [Concomitant]
     Active Substance: RANITIDINE
     Indication: PRODUCT USED FOR UNKNOWN INDICATION
     Route: 065
  17. VENLAFAXINE [Concomitant]
     Active Substance: VENLAFAXINE HYDROCHLORIDE
     Indication: DERMATITIS ATOPIC
     Route: 065
  18. FLUOCINOLONE ACETONIDE. [Suspect]
     Active Substance: FLUOCINOLONE ACETONIDE
     Indication: DERMATITIS ATOPIC
     Route: 065
  19. HYDROCORTISONE. [Suspect]
     Active Substance: HYDROCORTISONE
     Indication: PRODUCT USED FOR UNKNOWN INDICATION
     Dosage: UNK
     Route: 061

REACTIONS (11)
  - Oedema peripheral [Recovering/Resolving]
  - Staphylococcal skin infection [Recovering/Resolving]
  - Hypertension [Recovering/Resolving]
  - Generalised oedema [Recovering/Resolving]
  - Dyspnoea [Unknown]
  - Dermatitis atopic [Recovered/Resolved]
  - Fatigue [Recovering/Resolving]
  - Blood glucose increased [Unknown]
  - Blood smear test abnormal [Unknown]
  - Leukopenia [Unknown]
  - Blood creatinine increased [Unknown]
